FAERS Safety Report 21940044 (Version 1)
Quarter: 2023Q1

REPORT INFORMATION
  Report Type: Spontaneous
  Country: US (occurrence: US)
  Receive Date: 20230201
  Receipt Date: 20230201
  Transmission Date: 20230418
  Serious: No
  Sender: FDA-Public Use
  Company Number: US-ABBVIE-4257903

PATIENT
  Age: 67 Year
  Sex: Female

DRUGS (5)
  1. HUMIRA [Suspect]
     Active Substance: ADALIMUMAB
     Indication: SAPHO syndrome
     Route: 058
  2. HUMIRA [Suspect]
     Active Substance: ADALIMUMAB
     Indication: Bone disorder
     Route: 058
     Dates: start: 202205
  3. HUMIRA [Suspect]
     Active Substance: ADALIMUMAB
     Indication: Skin disorder
  4. DUPIXENT [Concomitant]
     Active Substance: DUPILUMAB
     Indication: Product used for unknown indication
  5. REMICADE [Concomitant]
     Active Substance: INFLIXIMAB
     Indication: Product used for unknown indication

REACTIONS (8)
  - Illness [Unknown]
  - COVID-19 [Unknown]
  - Device difficult to use [Not Recovered/Not Resolved]
  - Off label use [Unknown]
  - Dyspnoea [Unknown]
  - Tremor [Unknown]
  - Viral infection [Recovered/Resolved]
  - Head titubation [Unknown]

NARRATIVE: CASE EVENT DATE: 20220501
